FAERS Safety Report 11383718 (Version 1)
Quarter: 2015Q3

REPORT INFORMATION
  Report Type: Spontaneous
  Country: US (occurrence: US)
  Receive Date: 20150814
  Receipt Date: 20150814
  Transmission Date: 20151125
  Serious: Yes (Other)
  Sender: FDA-Public Use
  Company Number: US-GE HEALTHCARE MEDICAL DIAGNOSTICS-OPTN-PR-1508S-0008

PATIENT
  Age: 64 Year
  Sex: Female

DRUGS (3)
  1. OPTISON [Suspect]
     Active Substance: ALBUMIN (HUMAN)
     Indication: DYSPNOEA
  2. OPTISON [Suspect]
     Active Substance: ALBUMIN (HUMAN)
     Indication: DIAGNOSTIC PROCEDURE
  3. OPTISON [Suspect]
     Active Substance: ALBUMIN (HUMAN)
     Indication: CHEST PAIN
     Route: 042
     Dates: start: 20150728, end: 20150728

REACTIONS (2)
  - Dyspnoea [Unknown]
  - Respiratory distress [Unknown]

NARRATIVE: CASE EVENT DATE: 20150728
